FAERS Safety Report 4664082-4 (Version None)
Quarter: 2005Q2

REPORT INFORMATION
  Report Type: 
  Country: None (occurrence: None)
  Receive Date: 20050516
  Receipt Date: 20050516
  Transmission Date: 20051028
  Serious: Yes (Hospitalization)
  Sender: FDA-Public Use
  Company Number: None

PATIENT
  Age: 72 Year
  Sex: Male
  Weight: 81.6 kg

DRUGS (4)
  1. SIMVASTATIN [Suspect]
     Indication: HYPERLIPIDAEMIA
     Dosage: 20 MG PO QHS
     Route: 048
     Dates: start: 20050105, end: 20050206
  2. ENALAPRIL MALEATE [Concomitant]
  3. TRAMADOL HCL [Concomitant]
  4. LANCET,TECHLITE [Concomitant]

REACTIONS (1)
  - HEPATITIS ACUTE [None]
